FAERS Safety Report 9734586 (Version 2)
Quarter: 2013Q4

REPORT INFORMATION
  Report Type: Spontaneous
  Country: US (occurrence: US)
  Receive Date: 20131206
  Receipt Date: 20131211
  Transmission Date: 20140711
  Serious: Yes (Other)
  Sender: FDA-Public Use
  Company Number: US-ROCHE-1313818

PATIENT
  Sex: Male
  Weight: 158.9 kg

DRUGS (5)
  1. XOLAIR [Suspect]
     Indication: PRODUCT USED FOR UNKNOWN INDICATION
     Route: 065
  2. DULERA [Concomitant]
     Indication: ASTHMA
     Dosage: 200-5 MCG
     Route: 055
     Dates: start: 20110428
  3. PROAIR (UNITED STATES) [Concomitant]
     Indication: ASTHMA
     Dosage: AS REQUIRED (4-6)
     Route: 065
     Dates: start: 20100414
  4. NASONEX [Concomitant]
     Indication: RHINITIS ALLERGIC
     Route: 065
     Dates: start: 20120814
  5. ALBUTEROL SOLUTION [Concomitant]
     Indication: ASTHMA
     Dosage: AS REQUIRED
     Route: 065
     Dates: start: 20131120

REACTIONS (2)
  - Diabetes mellitus [Unknown]
  - Blood pressure increased [Unknown]
